FAERS Safety Report 11424458 (Version 2)
Quarter: 2016Q3

REPORT INFORMATION
  Report Type: Spontaneous
  Country: US (occurrence: US)
  Receive Date: 20150827
  Receipt Date: 20160822
  Transmission Date: 20161109
  Serious: Yes (Hospitalization, Other)
  Sender: FDA-Public Use
  Company Number: US-SA-2015SA012664

PATIENT
  Age: 76 Year
  Sex: Female

DRUGS (23)
  1. MULTAQ [Interacting]
     Active Substance: DRONEDARONE
     Indication: ATRIAL FIBRILLATION
     Route: 065
     Dates: start: 201412
  2. MAGNESIUM [Concomitant]
     Active Substance: MAGNESIUM
  3. MULTAQ [Suspect]
     Active Substance: DRONEDARONE
     Indication: ATRIAL FIBRILLATION
     Route: 065
     Dates: start: 201412
  4. PLAVIX [Suspect]
     Active Substance: CLOPIDOGREL BISULFATE
     Route: 065
  5. CRESTOR [Interacting]
     Active Substance: ROSUVASTATIN CALCIUM
     Route: 065
  6. SYNTHROID [Concomitant]
     Active Substance: LEVOTHYROXINE SODIUM
  7. FISH OIL [Concomitant]
     Active Substance: FISH OIL
  8. COENZYME Q10 [Concomitant]
     Active Substance: UBIDECARENONE
  9. MULTAQ [Interacting]
     Active Substance: DRONEDARONE
     Indication: HEART RATE IRREGULAR
     Route: 065
     Dates: start: 201412
  10. ELIQUIS [Suspect]
     Active Substance: APIXABAN
     Route: 065
  11. SYNTHROID [Concomitant]
     Active Substance: LEVOTHYROXINE SODIUM
  12. ASPIRIN. [Suspect]
     Active Substance: ASPIRIN
     Route: 065
  13. VITAMIN D [Concomitant]
     Active Substance: CHOLECALCIFEROL
  14. GARLIC. [Concomitant]
     Active Substance: GARLIC
  15. MULTAQ [Interacting]
     Active Substance: DRONEDARONE
     Indication: HEART RATE IRREGULAR
     Route: 065
     Dates: start: 201412
  16. LISINOPRIL. [Concomitant]
     Active Substance: LISINOPRIL
  17. CLONAZEPAM. [Concomitant]
     Active Substance: CLONAZEPAM
  18. VITAMIN C [Concomitant]
     Active Substance: ASCORBIC ACID
  19. MULTAQ [Interacting]
     Active Substance: DRONEDARONE
     Indication: ATRIAL FIBRILLATION
     Route: 065
     Dates: start: 201412
  20. PROPANOLOL [Concomitant]
     Active Substance: PROPRANOLOL HYDROCHLORIDE
  21. VITAMIN B6 [Concomitant]
     Active Substance: PYRIDOXINE HYDROCHLORIDE
  22. MULTAQ [Interacting]
     Active Substance: DRONEDARONE
     Indication: HEART RATE IRREGULAR
     Route: 065
     Dates: start: 201412
  23. ASA [Concomitant]
     Active Substance: ASPIRIN

REACTIONS (19)
  - Blood glucose decreased [Unknown]
  - Tremor [Unknown]
  - Dyspnoea [Unknown]
  - Nervousness [Unknown]
  - Hypothyroidism [Unknown]
  - Rectal haemorrhage [Not Recovered/Not Resolved]
  - Heart rate irregular [Unknown]
  - Atrial fibrillation [Not Recovered/Not Resolved]
  - Feeling abnormal [Unknown]
  - Anxiety [Unknown]
  - Chest discomfort [Unknown]
  - Diarrhoea [Unknown]
  - Visual impairment [Unknown]
  - Fatigue [Unknown]
  - Hypotension [Unknown]
  - Condition aggravated [Unknown]
  - Haemorrhage [Recovered/Resolved]
  - Drug interaction [Unknown]
  - Rash [Unknown]

NARRATIVE: CASE EVENT DATE: 20150821
